FAERS Safety Report 19756227 (Version 2)
Quarter: 2021Q4

REPORT INFORMATION
  Report Type: Other
  Country: FR (occurrence: FR)
  Receive Date: 20210827
  Receipt Date: 20211112
  Transmission Date: 20220303
  Serious: Yes (Other)
  Sender: FDA-Public Use
  Company Number: None

PATIENT

DRUGS (8)
  1. VISIPAQUE [Suspect]
     Active Substance: IODIXANOL
     Indication: Angiocardiogram
     Dosage: 77 ML, SINGLE
     Route: 042
     Dates: start: 20210728, end: 20210728
  2. VISIPAQUE [Suspect]
     Active Substance: IODIXANOL
     Indication: Product used for unknown indication
  3. MYOVIEW [Suspect]
     Active Substance: TECHNETIUM TC-99M TETROFOSMIN
     Indication: Scan myocardial perfusion
     Dosage: 1 DF, SINGLE
     Route: 042
     Dates: start: 20210729, end: 20210729
  4. MYOVIEW [Suspect]
     Active Substance: TECHNETIUM TC-99M TETROFOSMIN
     Indication: Product used for unknown indication
  5. HEPARIN SODIUM [Suspect]
     Active Substance: HEPARIN SODIUM
     Indication: Angiocardiogram
     Dosage: 2000 IU
     Route: 042
     Dates: start: 20210728, end: 20210728
  6. ISOSORBIDE [Suspect]
     Active Substance: ISOSORBIDE
     Indication: Angiocardiogram
     Dosage: 1 DF
     Route: 042
     Dates: start: 20210728, end: 20210728
  7. NITROGLYCERIN [Suspect]
     Active Substance: NITROGLYCERIN
     Indication: Scan myocardial perfusion
     Dosage: 1 DF
     Route: 060
     Dates: start: 20210729, end: 20210729
  8. TECHNETIUM TC-99M [Concomitant]
     Active Substance: TECHNETIUM TC-99M
     Indication: Scan myocardial perfusion
     Dosage: UNK
     Dates: start: 20210729, end: 20210729

REACTIONS (1)
  - Acute generalised exanthematous pustulosis [Recovered/Resolved]

NARRATIVE: CASE EVENT DATE: 20210729
